FAERS Safety Report 21867249 (Version 1)
Quarter: 2023Q1

REPORT INFORMATION
  Report Type: 
  Country: US (occurrence: US)
  Receive Date: 20230116
  Receipt Date: 20230116
  Transmission Date: 20230418
  Serious: Yes (Hospitalization, Other)
  Sender: FDA-Public Use
  Company Number: US-C B Fleet Co Inc-202301-US-000003

PATIENT
  Sex: Female

DRUGS (1)
  1. TAGAMET [Suspect]
     Active Substance: CIMETIDINE
     Indication: Dyspepsia
     Dosage: UNKNOWN DOSE
     Route: 048

REACTIONS (1)
  - Seizure [Recovered/Resolved]
